FAERS Safety Report 15262412 (Version 1)
Quarter: 2018Q3

REPORT INFORMATION
  Report Type: Spontaneous
  Country: US (occurrence: US)
  Receive Date: 20180720
  Receipt Date: 20180720
  Transmission Date: 20181010
  Serious: Yes (Other)
  Sender: FDA-Public Use
  Company Number: None

PATIENT
  Sex: Female
  Weight: 65.25 kg

DRUGS (1)
  1. DROSPIRENONE ETHINYL ESTRADIOL [Suspect]
     Active Substance: DROSPIRENONE\ETHINYL ESTRADIOL

REACTIONS (14)
  - Insurance issue [None]
  - Hair texture abnormal [None]
  - Pain in extremity [None]
  - Skin discolouration [None]
  - Metrorrhagia [None]
  - Loss of libido [None]
  - Product substitution issue [None]
  - Alopecia [None]
  - Peau d^orange [None]
  - Fatigue [None]
  - Dysmenorrhoea [None]
  - Mood swings [None]
  - Breast pain [None]
  - Weight increased [None]
